FAERS Safety Report 8016613-4 (Version None)
Quarter: 2011Q4

REPORT INFORMATION
  Report Type: 
  Country: None (occurrence: None)
  Receive Date: 20111231
  Receipt Date: 20111223
  Transmission Date: 20120403
  Serious: Yes (Other)
  Sender: FDA-Public Use
  Company Number: CHPA2011US018586

PATIENT
  Sex: Male

DRUGS (1)
  1. EX-LAX UNKNOWN [Suspect]
     Dosage: UNK, UNK
     Route: 048
     Dates: start: 20111222, end: 20111222

REACTIONS (2)
  - RECTAL HAEMORRHAGE [None]
  - VOMITING [None]
